FAERS Safety Report 15561233 (Version 2)
Quarter: 2018Q4

REPORT INFORMATION
  Report Type: Report from Study
  Country: US (occurrence: US)
  Receive Date: 20181029
  Receipt Date: 20181113
  Transmission Date: 20190205
  Serious: Yes (Hospitalization, Other)
  Sender: FDA-Public Use
  Company Number: US-ALEXION-A201814125

PATIENT
  Age: 71 Year
  Sex: Female
  Weight: 50.79 kg

DRUGS (1)
  1. SOLIRIS [Suspect]
     Active Substance: ECULIZUMAB
     Indication: ATYPICAL HAEMOLYTIC URAEMIC SYNDROME
     Dosage: UNK
     Route: 065
     Dates: start: 201806, end: 20180904

REACTIONS (9)
  - Pyrexia [Unknown]
  - Infection [Unknown]
  - Gastrostomy tube site complication [Unknown]
  - Joint swelling [Unknown]
  - Endocarditis [Unknown]
  - Streptococcal infection [Unknown]
  - Arthritis infective [Unknown]
  - Fungal infection [Unknown]
  - Confusional state [Unknown]

NARRATIVE: CASE EVENT DATE: 20181016
